FAERS Safety Report 9709746 (Version 3)
Quarter: 2014Q2

REPORT INFORMATION
  Report Type: Spontaneous
  Country: BR (occurrence: BR)
  Receive Date: 20131126
  Receipt Date: 20140502
  Transmission Date: 20141212
  Serious: Yes (Hospitalization)
  Sender: FDA-Public Use
  Company Number: BR-ASTRAZENECA-2013SE86092

PATIENT
  Age: 72 Year
  Sex: Male
  Weight: 80 kg

DRUGS (10)
  1. CRESTOR [Suspect]
     Indication: HYPERCHOLESTEROLAEMIA
     Route: 048
     Dates: start: 201308, end: 201309
  2. CRESTOR [Suspect]
     Indication: HYPERCHOLESTEROLAEMIA
     Route: 048
     Dates: start: 201309
  3. BRILINTA [Suspect]
     Route: 048
     Dates: start: 201311
  4. GLUCOVANCE (METFORMIN) [Suspect]
     Indication: DIABETES MELLITUS
     Route: 065
  5. NAPRIX [Concomitant]
     Indication: INFARCTION
     Route: 048
     Dates: start: 201307
  6. PROCIMAX [Concomitant]
     Indication: DEPRESSION
     Route: 048
     Dates: start: 2003
  7. CONCOR [Concomitant]
     Indication: INFARCTION
     Route: 048
     Dates: start: 201307
  8. AAS PEDIATRIC [Concomitant]
     Indication: INFARCTION
     Route: 048
     Dates: start: 201307
  9. SERETIDE [Concomitant]
     Indication: COUGH
     Dosage: 25/250 MCG, TWO TIMES A DAY
     Route: 055
     Dates: start: 201307
  10. PURAN T4 [Concomitant]
     Indication: THYROID DISORDER
     Route: 048
     Dates: start: 2003

REACTIONS (5)
  - Myocardial infarction [Not Recovered/Not Resolved]
  - Device occlusion [Recovering/Resolving]
  - Panic attack [Not Recovered/Not Resolved]
  - Drug ineffective [Unknown]
  - Blood cholesterol increased [Recovered/Resolved]
